FAERS Safety Report 24676825 (Version 1)
Quarter: 2024Q4

REPORT INFORMATION
  Report Type: Spontaneous
  Country: US (occurrence: US)
  Receive Date: 20241128
  Receipt Date: 20241128
  Transmission Date: 20250115
  Serious: Yes (Other)
  Sender: ABBVIE
  Company Number: US-ABBVIE-6016578

PATIENT

DRUGS (3)
  1. VRAYLAR [Suspect]
     Active Substance: CARIPRAZINE
     Indication: Bipolar disorder
     Route: 048
  2. THORAZINE [Suspect]
     Active Substance: CHLORPROMAZINE
     Indication: Product used for unknown indication
     Route: 065
  3. DOPAMINE HYDROCHLORIDE [Suspect]
     Active Substance: DOPAMINE HYDROCHLORIDE
     Indication: Product used for unknown indication
     Route: 065

REACTIONS (9)
  - Seizure [Unknown]
  - Fall [Unknown]
  - Cognitive disorder [Unknown]
  - Off label use [Unknown]
  - Vertigo [Unknown]
  - Nausea [Unknown]
  - Bone disorder [Unknown]
  - Constipation [Unknown]
  - Gastrointestinal disorder [Unknown]
